FAERS Safety Report 4453853-5 (Version None)
Quarter: 2004Q3

REPORT INFORMATION
  Report Type: 
  Country: None (occurrence: None)
  Receive Date: 20040826
  Receipt Date: 20040503
  Transmission Date: 20050211
  Serious: No
  Sender: FDA-Public Use
  Company Number: WAES 0405USA00212

PATIENT
  Age: 55 Year
  Sex: Female

DRUGS (3)
  1. ZETIA [Suspect]
     Indication: HYPERCHOLESTEROLAEMIA
     Dosage: PO
     Route: 048
  2. NIASPAN [Concomitant]
  3. ZOCOR [Concomitant]

REACTIONS (2)
  - PARAESTHESIA [None]
  - RASH ERYTHEMATOUS [None]
